FAERS Safety Report 12340911 (Version 1)
Quarter: 2016Q2

REPORT INFORMATION
  Report Type: Spontaneous
  Country: US (occurrence: US)
  Receive Date: 20160506
  Receipt Date: 20160506
  Transmission Date: 20160815
  Serious: No
  Sender: FDA-Public Use
  Company Number: US-PFIZER INC-2016240976

PATIENT
  Age: 55 Year
  Sex: Female

DRUGS (1)
  1. XELJANZ [Suspect]
     Active Substance: TOFACITINIB CITRATE
     Dosage: UNK
     Dates: start: 20150814

REACTIONS (3)
  - Arthralgia [Unknown]
  - Musculoskeletal pain [Unknown]
  - Disease recurrence [Unknown]

NARRATIVE: CASE EVENT DATE: 20160425
